FAERS Safety Report 8327903-X (Version None)
Quarter: 2012Q2

REPORT INFORMATION
  Report Type: 
  Country: None (occurrence: None)
  Receive Date: 20120430
  Receipt Date: 20120413
  Transmission Date: 20120825
  Serious: Yes (Life-Threatening, Hospitalization)
  Sender: FDA-Public Use
  Company Number: UTC-017590

PATIENT
  Age: 44 Year
  Sex: Female
  Weight: 58.2 kg

DRUGS (3)
  1. REVATIO [Concomitant]
  2. REMODULIN [Suspect]
     Indication: PULMONARY HYPERTENSION
     Dosage: 24.48 UG/KG (0.017 UG/KG, 1 IN 1 MIN), SUBCUTANEOUS
     Route: 058
     Dates: start: 20110701
  3. DIURETICS (DIURETICS) [Concomitant]

REACTIONS (6)
  - DEHYDRATION [None]
  - BLOOD PRESSURE DECREASED [None]
  - SEPSIS [None]
  - RIGHT VENTRICULAR FAILURE [None]
  - INFUSION SITE INFECTION [None]
  - WHITE BLOOD CELL COUNT INCREASED [None]
